FAERS Safety Report 8813764 (Version 2)
Quarter: 2012Q4

REPORT INFORMATION
  Report Type: 
  Country: US (occurrence: US)
  Receive Date: 20120928
  Receipt Date: 20121010
  Transmission Date: 20130627
  Serious: Yes (Hospitalization, Other)
  Sender: FDA-Public Use
  Company Number: US-BRISTOL-MYERS SQUIBB COMPANY-16987349

PATIENT
  Age: 59 Year
  Sex: Female

DRUGS (6)
  1. ORENCIA [Suspect]
     Indication: RHEUMATOID ARTHRITIS
     Dosage: last inf on 13JUN2012,then started the subQ,125mg SQ,23Nov11-24Jan.21Jan12-May12.
     Route: 042
     Dates: start: 20111123, end: 20120129
  2. ABATACEPT SUBQ INJECTION 125MG/ML [Suspect]
     Indication: RHEUMATOID ARTHRITIS
     Route: 058
     Dates: start: 20120129, end: 201205
  3. ALENDRONATE [Concomitant]
  4. CYMBALTA [Concomitant]
  5. PREDNISONE [Concomitant]
  6. METHOTREXATE [Concomitant]

REACTIONS (2)
  - Large intestine polyp [Unknown]
  - Systemic lupus erythematosus rash [Recovered/Resolved]
